FAERS Safety Report 4578796-8 (Version None)
Quarter: 2005Q1

REPORT INFORMATION
  Report Type: 
  Country: None (occurrence: None)
  Receive Date: 20050207
  Receipt Date: 20050207
  Transmission Date: 20050727
  Serious: No
  Sender: FDA-Public Use
  Company Number: None

PATIENT
  Age: 51 Year
  Sex: Male
  Weight: 101 kg

DRUGS (3)
  1. PEG INTERFERON ALFA 2A [Suspect]
     Indication: HEPATIC CIRRHOSIS
     Dosage: 180 MCG WEEKLY SQ
     Route: 058
     Dates: start: 20041008, end: 20041201
  2. PEG INTERFERON ALFA 2A [Suspect]
     Indication: HEPATITIS C
     Dosage: 180 MCG WEEKLY SQ
     Route: 058
     Dates: start: 20041008, end: 20041201
  3. RIBAVIRIN [Concomitant]

REACTIONS (2)
  - ANEURYSM [None]
  - RETINAL EXUDATES [None]
